FAERS Safety Report 22315782 (Version 2)
Quarter: 2023Q2

REPORT INFORMATION
  Report Type: Spontaneous
  Country: BR (occurrence: BR)
  Receive Date: 20230512
  Receipt Date: 20230623
  Transmission Date: 20230722
  Serious: Yes (Other)
  Sender: FDA-Public Use
  Company Number: BR-002147023-NVSC2023BR103654

PATIENT
  Sex: Female

DRUGS (3)
  1. ZOLPIDEM TARTRATE [Suspect]
     Active Substance: ZOLPIDEM TARTRATE
     Indication: Insomnia
     Dosage: UNK (30FCT BR)
     Route: 065
  2. ZOLPIDEM TARTRATE [Suspect]
     Active Substance: ZOLPIDEM TARTRATE
     Dosage: UNK (30FCT BR) (MANUFACTURING DATE: AUG 2022)
     Route: 065
  3. ZOLPIDEM TARTRATE [Suspect]
     Active Substance: ZOLPIDEM TARTRATE
     Dosage: UNK (30FCT BR)
     Route: 065

REACTIONS (5)
  - Intentional product misuse [Unknown]
  - Poor quality sleep [Unknown]
  - Fatigue [Unknown]
  - Suspected counterfeit product [Unknown]
  - Drug ineffective [Unknown]
